FAERS Safety Report 24525563 (Version 1)
Quarter: 2024Q4

REPORT INFORMATION
  Report Type: Spontaneous
  Country: FR (occurrence: FR)
  Receive Date: 20241020
  Receipt Date: 20241020
  Transmission Date: 20250115
  Serious: Yes (Other)
  Sender: AUROBINDO
  Company Number: FR-AFSSAPS-LY2024001299

PATIENT
  Age: 38 Year
  Sex: Female
  Weight: 55 kg

DRUGS (13)
  1. DIAZEPAM [Suspect]
     Active Substance: DIAZEPAM
     Indication: Anxiety
     Dosage: 50 MILLIGRAM, ONCE A DAY
     Route: 048
     Dates: start: 20240618, end: 20240619
  2. DIAZEPAM [Suspect]
     Active Substance: DIAZEPAM
     Dosage: 70 MILLIGRAM, ONCE A DAY
     Route: 048
     Dates: start: 20240620, end: 20240705
  3. CYAMEMAZINE [Suspect]
     Active Substance: CYAMEMAZINE
     Indication: Anxiety
     Dosage: 80 MILLIGRAM, ONCE A DAY
     Route: 048
     Dates: start: 20240623, end: 20240626
  4. CYAMEMAZINE [Suspect]
     Active Substance: CYAMEMAZINE
     Indication: Major depression
     Dosage: 105 MILLIGRAM, ONCE A DAY
     Route: 048
     Dates: start: 20240627, end: 20240628
  5. CYAMEMAZINE [Suspect]
     Active Substance: CYAMEMAZINE
     Dosage: 140 MILLIGRAM, ONCE A DAY
     Route: 048
     Dates: start: 20240629, end: 20240703
  6. CYAMEMAZINE [Suspect]
     Active Substance: CYAMEMAZINE
     Dosage: 165 MILLIGRAM, ONCE A DAY
     Route: 048
     Dates: start: 20240704, end: 20240705
  7. SERTRALINE HYDROCHLORIDE [Concomitant]
     Active Substance: SERTRALINE HYDROCHLORIDE
     Indication: Product used for unknown indication
     Dosage: 50 MILLIGRAM, ONCE A DAY
     Route: 048
     Dates: start: 202403, end: 20240618
  8. SERTRALINE HYDROCHLORIDE [Concomitant]
     Active Substance: SERTRALINE HYDROCHLORIDE
     Dosage: 75 MILLIGRAM, ONCE A DAY
     Route: 048
     Dates: start: 20240619, end: 20240628
  9. SERTRALINE HYDROCHLORIDE [Concomitant]
     Active Substance: SERTRALINE HYDROCHLORIDE
     Dosage: 100 MILLIGRAM, ONCE A DAY
     Route: 048
     Dates: start: 20240629
  10. DOLIPRANE [Concomitant]
     Active Substance: ACETAMINOPHEN
     Indication: Product used for unknown indication
     Dosage: UNK
     Route: 065
  11. DAFALGAN [Concomitant]
     Active Substance: ACETAMINOPHEN
     Indication: Product used for unknown indication
     Dosage: UNK
     Route: 065
  12. CYANOCOBALAMIN\PYRIDOXINE HYDROCHLORIDE\THIAMINE [Concomitant]
     Active Substance: CYANOCOBALAMIN\PYRIDOXINE HYDROCHLORIDE\THIAMINE
     Indication: Product used for unknown indication
     Dosage: 2 DOSAGE FORM, ONCE A DAY (1-0-1)
     Route: 048
     Dates: start: 20240618
  13. HYDROXYZINE HYDROCHLORIDE [Concomitant]
     Active Substance: HYDROXYZINE HYDROCHLORIDE
     Indication: Product used for unknown indication
     Dosage: 25 MILLIGRAM, 1 TOTAL
     Route: 065
     Dates: start: 20240702

REACTIONS (1)
  - Hepatic cytolysis [Recovered/Resolved]

NARRATIVE: CASE EVENT DATE: 20240704
